FAERS Safety Report 5003325-4 (Version None)
Quarter: 2006Q2

REPORT INFORMATION
  Report Type: 
  Country: None (occurrence: None)
  Receive Date: 20060511
  Receipt Date: 20060504
  Transmission Date: 20061013
  Serious: Yes (Hospitalization, Other)
  Sender: FDA-Public Use
  Company Number: CHWYE532704APR06

PATIENT
  Age: 73 Year
  Sex: Female

DRUGS (6)
  1. EFFEXOR [Suspect]
     Dosage: 150 MG 1X PER 1 DAY ; 75 MG 1X PER 1 DAY
     Route: 048
     Dates: start: 20040701, end: 20050401
  2. EFFEXOR [Suspect]
     Dosage: 150 MG 1X PER 1 DAY ; 75 MG 1X PER 1 DAY
     Route: 048
     Dates: start: 20050402
  3. DETRUSITOL (TOLTERODINE L-TARTRATE, 0) [Suspect]
     Dosage: 4 MG 1X PER 1 DAY
     Route: 048
     Dates: start: 20050225, end: 20050406
  4. CLOZAPINE [Suspect]
     Dosage: 100 MG 1X PER 1 DAY ; 125 MG 1X PER 1 DAY
     Route: 048
     Dates: end: 20050329
  5. CLOZAPINE [Suspect]
     Dosage: 100 MG 1X PER 1 DAY ; 125 MG 1X PER 1 DAY
     Route: 048
     Dates: start: 20050330
  6. METOPROLOL SUCCINATE [Concomitant]

REACTIONS (5)
  - BLOOD CREATINE PHOSPHOKINASE INCREASED [None]
  - BODY TEMPERATURE INCREASED [None]
  - DELIRIUM [None]
  - DRUG INTERACTION [None]
  - INCOHERENT [None]
